FAERS Safety Report 5647881-1 (Version None)
Quarter: 2008Q1

REPORT INFORMATION
  Report Type: 
  Country: None (occurrence: None)
  Receive Date: 20080303
  Receipt Date: 20080220
  Transmission Date: 20080703
  Serious: Yes (Other)
  Sender: FDA-Public Use
  Company Number: US-PFIZER INC-2008017602

PATIENT
  Sex: Male
  Weight: 93.9 kg

DRUGS (1)
  1. CHANTIX [Suspect]
     Indication: SMOKING CESSATION THERAPY
     Dates: start: 20080101, end: 20080201

REACTIONS (12)
  - ABNORMAL DREAMS [None]
  - ANGER [None]
  - CONSTIPATION [None]
  - DISCOMFORT [None]
  - DRUG INEFFECTIVE [None]
  - FLATULENCE [None]
  - FREQUENT BOWEL MOVEMENTS [None]
  - GASTRIC DISORDER [None]
  - MALAISE [None]
  - MOOD ALTERED [None]
  - NAUSEA [None]
  - WEIGHT INCREASED [None]
